FAERS Safety Report 8761610 (Version 1)
Quarter: 2012Q4

REPORT INFORMATION
  Report Type: Spontaneous
  Country: US (occurrence: None)
  Receive Date: 20120830
  Receipt Date: 20120830
  Transmission Date: 20130627
  Serious: No
  Sender: FDA-Public Use
  Company Number: None

PATIENT

DRUGS (3)
  1. RHOPHYLAC [Suspect]
     Indication: RH ISOIMMUNIZATION
     Route: 030
     Dates: start: 20120823, end: 20120823
  2. RHOPHYLAC [Suspect]
     Indication: RH ISOIMMUNIZATION
  3. RHOPHYLAC [Suspect]

REACTIONS (2)
  - Device malfunction [None]
  - Incorrect dose administered by device [None]
